FAERS Safety Report 24000659 (Version 1)
Quarter: 2024Q2

REPORT INFORMATION
  Report Type: Spontaneous
  Country: GB (occurrence: GB)
  Receive Date: 20240621
  Receipt Date: 20240621
  Transmission Date: 20240716
  Serious: Yes (Life-Threatening, Disabling, Other)
  Sender: FDA-Public Use
  Company Number: None

PATIENT
  Age: 54 Year
  Sex: Male
  Weight: 70 kg

DRUGS (1)
  1. ESCITALOPRAM [Suspect]
     Active Substance: ESCITALOPRAM OXALATE
     Indication: Depression
     Dosage: 10 MG ONCE DAILY
     Route: 065
     Dates: start: 20180810

REACTIONS (3)
  - Nightmare [Not Recovered/Not Resolved]
  - Anxiety [Unknown]
  - Screaming [Unknown]

NARRATIVE: CASE EVENT DATE: 20240610
